FAERS Safety Report 13590659 (Version 1)
Quarter: 2017Q2

REPORT INFORMATION
  Report Type: Spontaneous
  Country: CA (occurrence: CA)
  Receive Date: 20170530
  Receipt Date: 20170530
  Transmission Date: 20170830
  Serious: Yes (Other)
  Sender: FDA-Public Use
  Company Number: CA-PFIZER INC-2017229253

PATIENT

DRUGS (2)
  1. SOMAVERT [Suspect]
     Active Substance: PEGVISOMANT
  2. SOMASTIN [Suspect]
     Active Substance: SOMATOSTATIN

REACTIONS (1)
  - Hepatotoxicity [Recovered/Resolved]
